FAERS Safety Report 16379529 (Version 1)
Quarter: 2019Q2

REPORT INFORMATION
  Report Type: Spontaneous
  Country: US (occurrence: US)
  Receive Date: 20190424
  Receipt Date: 20190424
  Transmission Date: 20190711
  Serious: Yes (Hospitalization)
  Sender: FDA-Public Use
  Company Number: None

PATIENT
  Sex: Male

DRUGS (10)
  1. ZARXIO [Suspect]
     Active Substance: FILGRASTIM-SNDZ
     Indication: OESOPHAGEAL CARCINOMA
     Dosage: ?          OTHER FREQUENCY:QD FOR 5 DAYS;?
     Route: 058
     Dates: start: 20180612
  2. ESZOPICLONE. [Concomitant]
     Active Substance: ESZOPICLONE
  3. ONDANSETRON [Concomitant]
     Active Substance: ONDANSETRON
  4. ENOXAPARIN [Concomitant]
     Active Substance: ENOXAPARIN
  5. GABAPENTIN. [Concomitant]
     Active Substance: GABAPENTIN
  6. LIDO/PRILOCN [Concomitant]
  7. LORAZEPAM. [Concomitant]
     Active Substance: LORAZEPAM
  8. TYLENOL [Concomitant]
     Active Substance: ACETAMINOPHEN
  9. IMODIUM [Concomitant]
     Active Substance: LOPERAMIDE HYDROCHLORIDE
  10. MIRALAX [Concomitant]
     Active Substance: POLYETHYLENE GLYCOL 3350

REACTIONS (2)
  - Hospitalisation [None]
  - Therapy cessation [None]
